FAERS Safety Report 5093561-3 (Version None)
Quarter: 2006Q3

REPORT INFORMATION
  Report Type: 
  Country: None (occurrence: None)
  Receive Date: 20060829
  Receipt Date: 20060814
  Transmission Date: 20061208
  Serious: Yes (Hospitalization)
  Sender: FDA-Public Use
  Company Number: US200608003063

PATIENT
  Sex: Female

DRUGS (10)
  1. HUMALOG PEN [Suspect]
     Indication: DIABETES MELLITUS INSULIN-DEPENDENT
     Dosage: SEE IMAGE
  2. HUMALOG [Suspect]
     Indication: DIABETES MELLITUS INSULIN-DEPENDENT
  3. HUMULIN N [Suspect]
     Indication: DIABETES MELLITUS INSULIN-DEPENDENT
  4. INSULIN [Suspect]
     Indication: DIABETES MELLITUS INSULIN-DEPENDENT
     Dates: start: 19660101
  5. PREMARIN [Concomitant]
  6. PROVERA [Concomitant]
  7. ENALAPRIL [Concomitant]
  8. NEXIUM [Concomitant]
  9. PLAVIX [Concomitant]
  10. LANTUS [Concomitant]

REACTIONS (13)
  - BLOOD GLUCOSE FLUCTUATION [None]
  - DIABETES MELLITUS INSULIN-DEPENDENT [None]
  - GALLBLADDER DISORDER [None]
  - HIDRADENITIS [None]
  - HYPOGLYCAEMIA [None]
  - NEUROPATHY PERIPHERAL [None]
  - PHARMACEUTICAL PRODUCT COMPLAINT [None]
  - PRURITUS [None]
  - SINUSITIS [None]
  - SKIN DISORDER [None]
  - SKIN GRAFT [None]
  - VENOUS OCCLUSION [None]
  - VULVAL CANCER [None]
